FAERS Safety Report 11062414 (Version 1)
Quarter: 2015Q2

REPORT INFORMATION
  Report Type: Spontaneous
  Country: US (occurrence: None)
  Receive Date: 20150423
  Receipt Date: 20150423
  Transmission Date: 20150821
  Serious: No
  Sender: FDA-Public Use
  Company Number: None

PATIENT
  Age: 58 Year
  Sex: Female

DRUGS (1)
  1. PROLIA [Suspect]
     Active Substance: DENOSUMAB
     Indication: SENILE OSTEOPOROSIS
     Dosage: EVERY  6 MONTHS
     Route: 058
     Dates: start: 201304, end: 201410

REACTIONS (7)
  - Pyrexia [None]
  - Pain in extremity [None]
  - Calcium deficiency [None]
  - Chills [None]
  - Vitamin D decreased [None]
  - Iron deficiency [None]
  - Discomfort [None]
